FAERS Safety Report 6558200-0 (Version None)
Quarter: 2010Q1

REPORT INFORMATION
  Report Type: 
  Country: None (occurrence: None)
  Receive Date: 20100127
  Receipt Date: 20100127
  Transmission Date: 20100710
  Serious: Yes (Hospitalization)
  Sender: FDA-Public Use
  Company Number: None

PATIENT
  Age: 85 Year
  Sex: Female
  Weight: 49.8 kg

DRUGS (19)
  1. ASPIRIN [Suspect]
     Indication: DEEP VEIN THROMBOSIS
     Dosage: 81MG/70 MG DAILY / Q12HR PO/SC
     Route: 048
  2. COUMADIN [Suspect]
     Indication: DEEP VEIN THROMBOSIS
     Dosage: ? ? PO, RECENT
     Route: 048
  3. LOVCHOIR [Concomitant]
  4. NORVASC [Concomitant]
  5. CALATONIN [Concomitant]
  6. COREG [Concomitant]
  7. VIT D [Concomitant]
  8. DIGOXIN [Concomitant]
  9. ARICEPT [Concomitant]
  10. LASIX [Concomitant]
  11. GABAPENTIN [Concomitant]
  12. NIFEREX [Concomitant]
  13. M.V.I. [Concomitant]
  14. NITROFURONTOIN [Concomitant]
  15. TRILEPTAL [Concomitant]
  16. ACTONEL [Concomitant]
  17. PHENERGAN HCL [Concomitant]
  18. CALCIUM CITRATE [Concomitant]
  19. PROTONIX [Concomitant]

REACTIONS (6)
  - CONTRAINDICATION TO MEDICAL TREATMENT [None]
  - GASTRIC CANCER [None]
  - GASTRIC ULCER [None]
  - HAEMORRHAGIC ANAEMIA [None]
  - NO THERAPEUTIC RESPONSE [None]
  - UPPER GASTROINTESTINAL HAEMORRHAGE [None]
